FAERS Safety Report 4593571-6 (Version None)
Quarter: 2005Q1

REPORT INFORMATION
  Report Type: 
  Country: None (occurrence: None)
  Receive Date: 20050224
  Receipt Date: 20040730
  Transmission Date: 20050727
  Serious: No
  Sender: FDA-Public Use
  Company Number: US-BRISTOL-MYERS SQUIBB COMPANY-12697983

PATIENT
  Sex: Female

DRUGS (5)
  1. EXCEDRIN (MIGRAINE) [Suspect]
  2. SINUTAB [Suspect]
  3. CLARITIN [Concomitant]
  4. ACTIFED [Concomitant]
  5. BENADRYL [Concomitant]

REACTIONS (1)
  - NERVOUSNESS [None]
